FAERS Safety Report 8565716-4 (Version None)
Quarter: 2012Q3

REPORT INFORMATION
  Report Type: 
  Country: None (occurrence: None)
  Receive Date: 20120803
  Receipt Date: 20111108
  Transmission Date: 20120928
  Serious: No
  Sender: FDA-Public Use
  Company Number: US-ABBOTT-11P-163-0872489-00

PATIENT
  Sex: Male
  Weight: 83.082 kg

DRUGS (3)
  1. LISINOPRIL [Concomitant]
     Indication: PRODUCT USED FOR UNKNOWN INDICATION
     Dosage: 20 MG
  2. NIASPAN [Suspect]
     Indication: BLOOD CHOLESTEROL
     Dates: start: 20111103, end: 20111104
  3. NIASPAN [Suspect]
     Dates: start: 20111107

REACTIONS (4)
  - FLUSHING [None]
  - HEADACHE [None]
  - MUSCLE TIGHTNESS [None]
  - CHEST DISCOMFORT [None]
